FAERS Safety Report 10755301 (Version 1)
Quarter: 2015Q1

REPORT INFORMATION
  Report Type: Report from Study
  Country: US (occurrence: US)
  Receive Date: 20150202
  Receipt Date: 20150202
  Transmission Date: 20150721
  Serious: Yes (Death, Hospitalization)
  Sender: FDA-Public Use
  Company Number: US-TEVA-523892USA

PATIENT
  Age: 61 Year
  Sex: Female
  Weight: 67.5 kg

DRUGS (22)
  1. CLARITIN [Concomitant]
     Active Substance: LORATADINE
  2. GAMMAGARD [Concomitant]
     Active Substance: HUMAN IMMUNOGLOBULIN G
     Dates: start: 2005
  3. PREMARIN [Concomitant]
     Active Substance: ESTROGENS, CONJUGATED
     Dates: start: 1990
  4. POSSACONAZOLE [Concomitant]
  5. TESSALON [Concomitant]
     Active Substance: BENZONATATE
  6. SINGULAIR [Concomitant]
     Active Substance: MONTELUKAST SODIUM
     Dates: start: 2007
  7. COMBIVENT [Concomitant]
     Active Substance: ALBUTEROL SULFATE\IPRATROPIUM BROMIDE
  8. MULTIVITAMINS [Concomitant]
     Active Substance: VITAMINS
     Dates: start: 201305
  9. ESTROGEN NOS [Concomitant]
     Active Substance: ESTROGENS
  10. GEMCITABINE [Suspect]
     Active Substance: GEMCITABINE\GEMCITABINE HYDROCHLORIDE
     Indication: HODGKIN^S DISEASE
     Dosage: 1000 MG/M2 DAILY;
     Route: 042
     Dates: start: 20140903, end: 20141105
  11. DIOVAN [Concomitant]
     Active Substance: VALSARTAN
     Dates: start: 1999
  12. COREG [Concomitant]
     Active Substance: CARVEDILOL
  13. XOPENEX [Concomitant]
     Active Substance: LEVALBUTEROL HYDROCHLORIDE
  14. BENZONATATE. [Concomitant]
     Active Substance: BENZONATATE
  15. TREANDA [Suspect]
     Active Substance: BENDAMUSTINE HYDROCHLORIDE
     Indication: HODGKIN^S DISEASE
     Dosage: 90 MG/M2 DAILY;
     Route: 042
     Dates: start: 20140903, end: 20141105
  16. DULERA [Concomitant]
     Active Substance: FORMOTEROL FUMARATE DIHYDRATE\MOMETASONE FUROATE
     Dates: start: 20140902
  17. VANCOMYCIN [Concomitant]
     Active Substance: VANCOMYCIN
     Indication: CLOSTRIDIUM DIFFICILE INFECTION
     Dosage: 250 MILLIGRAM DAILY;
     Route: 048
  18. CEFTRIAXONE. [Concomitant]
     Active Substance: CEFTRIAXONE
  19. LOPERAMIDE [Concomitant]
     Active Substance: LOPERAMIDE
  20. COMBIVENT [Concomitant]
     Active Substance: ALBUTEROL SULFATE\IPRATROPIUM BROMIDE
  21. CLARITIN [Concomitant]
     Active Substance: LORATADINE
     Dates: start: 2011
  22. PAXIL [Concomitant]
     Active Substance: PAROXETINE HYDROCHLORIDE
     Dates: start: 1997

REACTIONS (7)
  - Cough [Unknown]
  - Tachycardia [Unknown]
  - Pyrexia [Unknown]
  - Sepsis [Fatal]
  - Sudden death [Fatal]
  - Dyspnoea [Unknown]
  - Pulmonary embolism [Unknown]

NARRATIVE: CASE EVENT DATE: 20141112
